FAERS Safety Report 4776210-0 (Version None)
Quarter: 2005Q3

REPORT INFORMATION
  Report Type: 
  Country: None (occurrence: None)
  Receive Date: 20050914
  Receipt Date: 20050211
  Transmission Date: 20060218
  Serious: Yes (Other)
  Sender: FDA-Public Use
  Company Number: 163-20785-05020430

PATIENT

DRUGS (5)
  1. THALOMID [Suspect]
     Indication: MULTIPLE MYELOMA
     Dosage: ORAL
     Route: 048
  2. DURAGESIC-100 [Suspect]
     Indication: DRUG USE FOR UNKNOWN INDICATION
  3. OXYCODONE HCL [Suspect]
     Indication: DRUG USE FOR UNKNOWN INDICATION
  4. TOPROL-XL [Suspect]
     Indication: DRUG USE FOR UNKNOWN INDICATION
  5. LOW BACK PAIN MEDS [Suspect]
     Indication: BACK PAIN

REACTIONS (1)
  - DEPRESSED LEVEL OF CONSCIOUSNESS [None]
